FAERS Safety Report 6612398-4 (Version None)
Quarter: 2010Q1

REPORT INFORMATION
  Report Type: 
  Country: None (occurrence: None)
  Receive Date: 20100303
  Receipt Date: 20100218
  Transmission Date: 20100710
  Serious: Yes (Hospitalization, Other)
  Sender: FDA-Public Use
  Company Number: PHHY2010JP06074

PATIENT
  Age: 8 Year
  Sex: Female
  Weight: 25 kg

DRUGS (1)
  1. TEGRETOL [Suspect]
     Indication: EPILEPSY
     Dosage: 150 MG DAILY
     Route: 048
     Dates: start: 20100125, end: 20100202

REACTIONS (12)
  - DRUG ERUPTION [None]
  - EOSINOPHIL COUNT INCREASED [None]
  - FLUSHING [None]
  - HERPES SIMPLEX SEROLOGY POSITIVE [None]
  - INFECTION [None]
  - LIP OEDEMA [None]
  - MYCOPLASMA TEST POSITIVE [None]
  - NECK PAIN [None]
  - PYREXIA [None]
  - RASH [None]
  - RASH GENERALISED [None]
  - WHITE BLOOD CELL COUNT DECREASED [None]
